FAERS Safety Report 13084692 (Version 2)
Quarter: 2017Q2

REPORT INFORMATION
  Report Type: Spontaneous
  Country: US (occurrence: US)
  Receive Date: 20170104
  Receipt Date: 20170518
  Transmission Date: 20170830
  Serious: No
  Sender: FDA-Public Use
  Company Number: US-CELGENEUS-USA-2016121265

PATIENT
  Sex: Female

DRUGS (1)
  1. OTEZLA [Suspect]
     Active Substance: APREMILAST
     Indication: PSORIATIC ARTHROPATHY
     Dosage: 60 MILLIGRAM
     Route: 048
     Dates: start: 20151215, end: 20160720

REACTIONS (6)
  - Malaise [Unknown]
  - Feelings of worthlessness [Unknown]
  - Depressed mood [Unknown]
  - Psoriasis [Unknown]
  - Discomfort [Unknown]
  - Fatigue [Unknown]
